FAERS Safety Report 14745113 (Version 2)
Quarter: 2020Q1

REPORT INFORMATION
  Report Type: Report from Study
  Country: US (occurrence: US)
  Receive Date: 20180411
  Receipt Date: 20200323
  Transmission Date: 20200409
  Serious: No
  Sender: FDA-Public Use
  Company Number: US-TEVA-2018-US-860539

PATIENT
  Age: 60 Year
  Sex: Female

DRUGS (1)
  1. COPAXONE [Suspect]
     Active Substance: GLATIRAMER ACETATE
     Indication: MULTIPLE SCLEROSIS
     Route: 058
     Dates: start: 20170825

REACTIONS (4)
  - Cough [Unknown]
  - Bronchitis [Unknown]
  - Pyrexia [Unknown]
  - Sneezing [Unknown]

NARRATIVE: CASE EVENT DATE: 20180207
